FAERS Safety Report 18218274 (Version 2)
Quarter: 2020Q3

REPORT INFORMATION
  Report Type: Spontaneous
  Country: FR (occurrence: FR)
  Receive Date: 20200901
  Receipt Date: 20200923
  Transmission Date: 20201103
  Serious: Yes (Hospitalization, Other)
  Sender: FDA-Public Use
  Company Number: FR-ASTRAZENECA-2020SF07466

PATIENT
  Age: 476 Month
  Sex: Female

DRUGS (1)
  1. OLAPARIB. [Suspect]
     Active Substance: OLAPARIB
     Indication: OVARIAN CANCER
     Route: 048
     Dates: start: 202001

REACTIONS (4)
  - Pyrexia [Unknown]
  - Necrosis [Unknown]
  - Off label use [Unknown]
  - Impaired healing [Unknown]

NARRATIVE: CASE EVENT DATE: 202001
